FAERS Safety Report 10067399 (Version 3)
Quarter: 2014Q2

REPORT INFORMATION
  Report Type: Spontaneous
  Country: GB (occurrence: None)
  Receive Date: 20140407
  Receipt Date: 20140507
  Transmission Date: 20141212
  Serious: Yes (Death, Other)
  Sender: FDA-Public Use
  Company Number: 2014MPI00282

PATIENT
  Age: 64 Year
  Sex: Male
  Weight: 89 kg

DRUGS (6)
  1. ADCETRIS ( BRENTUXIMAB VEDOTIN) INJECTION [Suspect]
     Indication: ANAPLASTIC LARGE-CELL LYMPHOMA
     Route: 042
     Dates: start: 20140319, end: 20140319
  2. PREDNISOLONE [Concomitant]
  3. CO-TRIMOXAZOLE (CO-TRIMOXAZOLE) [Concomitant]
  4. ACICLOVIR (ACICLOVIR) [Concomitant]
  5. FLUCLOXACILLIN (FLUCLOXACILLIN) [Concomitant]
  6. BENZYLPENICILLIN (BENZYLPENICILLIN) [Concomitant]

REACTIONS (1)
  - Cardiac disorder [None]
